FAERS Safety Report 6864952-2 (Version None)
Quarter: 2010Q3

REPORT INFORMATION
  Report Type: 
  Country: None (occurrence: None)
  Receive Date: 20100721
  Receipt Date: 20080604
  Transmission Date: 20110219
  Serious: No
  Sender: FDA-Public Use
  Company Number: US-PFIZER INC-2008031935

PATIENT
  Sex: Female
  Weight: 90.9 kg

DRUGS (3)
  1. CHANTIX [Suspect]
     Indication: SMOKING CESSATION THERAPY
     Dates: start: 20080407
  2. CONTRACEPTIVE, UNSPECIFIED [Concomitant]
  3. PROTONIX [Concomitant]

REACTIONS (5)
  - DIZZINESS [None]
  - EUPHORIC MOOD [None]
  - HEADACHE [None]
  - NAUSEA [None]
  - PALPITATIONS [None]
